FAERS Safety Report 7436347-4 (Version None)
Quarter: 2011Q2

REPORT INFORMATION
  Report Type: 
  Country: None (occurrence: None)
  Receive Date: 20110426
  Receipt Date: 20110414
  Transmission Date: 20111010
  Serious: No
  Sender: FDA-Public Use
  Company Number: US-BIOGENIDEC-2010BI024003

PATIENT
  Sex: Female

DRUGS (4)
  1. TYSABRI [Suspect]
     Indication: MULTIPLE SCLEROSIS
     Route: 042
     Dates: start: 20091130
  2. AVONEX [Concomitant]
     Indication: MULTIPLE SCLEROSIS
     Route: 030
     Dates: start: 20091201
  3. AVONEX [Concomitant]
     Route: 030
  4. AVONEX [Concomitant]

REACTIONS (12)
  - TREMOR [None]
  - DIZZINESS [None]
  - PAIN [None]
  - BLOOD MAGNESIUM DECREASED [None]
  - BLOOD GLUCOSE INCREASED [None]
  - HYPERTENSION [None]
  - BLOOD PRESSURE INCREASED [None]
  - FATIGUE [None]
  - DYSPHONIA [None]
  - FIBROMYALGIA [None]
  - BLOOD CHOLESTEROL INCREASED [None]
  - HEADACHE [None]
